FAERS Safety Report 19979394 (Version 5)
Quarter: 2022Q3

REPORT INFORMATION
  Report Type: Other
  Country: JP (occurrence: JP)
  Receive Date: 20211021
  Receipt Date: 20220929
  Transmission Date: 20221026
  Serious: Yes (Death, Hospitalization, Other)
  Sender: FDA-Public Use
  Company Number: JP-CHUGAI-2021022966

PATIENT
  Age: 67 Year
  Sex: Male
  Weight: 53.7 kg

DRUGS (6)
  1. POLATUZUMAB VEDOTIN [Suspect]
     Active Substance: POLATUZUMAB VEDOTIN
     Indication: Diffuse large B-cell lymphoma
     Dosage: UNK
     Route: 041
     Dates: start: 20210812, end: 20210902
  2. RITUXIMAB [Suspect]
     Active Substance: RITUXIMAB
     Indication: Diffuse large B-cell lymphoma
     Dosage: MOST RECENT DOSE PRIOR TO AE 01/SEP/2021
     Route: 041
     Dates: start: 20210811, end: 20210901
  3. BENDAMUSTINE HYDROCHLORIDE [Suspect]
     Active Substance: BENDAMUSTINE HYDROCHLORIDE
     Indication: Diffuse large B-cell lymphoma
     Dosage: MOST RECENT DOSE PRIOR TO AE 03/SEP/2021
     Route: 041
     Dates: start: 20210812, end: 20210903
  4. HYDROMORPHONE HYDROCHLORIDE [Suspect]
     Active Substance: HYDROMORPHONE HYDROCHLORIDE
     Indication: Product used for unknown indication
     Dosage: UNK
     Route: 065
  5. HYDROMORPHONE HYDROCHLORIDE [Suspect]
     Active Substance: HYDROMORPHONE HYDROCHLORIDE
     Indication: Product used for unknown indication
     Dosage: UNK
     Route: 065
  6. ATOVAQUONE [Concomitant]
     Active Substance: ATOVAQUONE
     Indication: Infection prophylaxis
     Dosage: UNK
     Route: 048
     Dates: start: 20210813, end: 20210923

REACTIONS (9)
  - Melaena [Fatal]
  - Pyrexia [Recovered/Resolved]
  - Cytopenia [Not Recovered/Not Resolved]
  - Tumour lysis syndrome [Recovered/Resolved]
  - Vomiting [Recovering/Resolving]
  - Melaena [Recovered/Resolved]
  - Tumour pain [Recovering/Resolving]
  - Oedema [Unknown]
  - Therapeutic response decreased [Unknown]

NARRATIVE: CASE EVENT DATE: 20210813
